FAERS Safety Report 6413053-6 (Version None)
Quarter: 2009Q4

REPORT INFORMATION
  Report Type: 
  Country: None (occurrence: None)
  Receive Date: 20091023
  Receipt Date: 20091023
  Transmission Date: 20100525
  Serious: Yes (Life-Threatening, Hospitalization)
  Sender: FDA-Public Use
  Company Number: None

PATIENT
  Sex: Female
  Weight: 95.2554 kg

DRUGS (12)
  1. HUMATROPE [Suspect]
     Indication: BLOOD GROWTH HORMONE DECREASED
     Dosage: 1 CLICK TO 7 CLICKS OVER 6 YEARS
     Dates: start: 20030331, end: 20090226
  2. HUMATROPE [Suspect]
     Indication: FIBROMYALGIA
     Dosage: 1 CLICK TO 7 CLICKS OVER 6 YEARS
     Dates: start: 20030331, end: 20090226
  3. PREVACID [Concomitant]
  4. AMBIEN [Concomitant]
  5. PAXIL [Concomitant]
  6. XANAX [Concomitant]
  7. PHENTERMINE HYDROCHLORIDE [Concomitant]
  8. GLUCAPHAGE [Concomitant]
  9. ELAVIL [Concomitant]
  10. VICODIN ES [Concomitant]
  11. SKELAXIN [Concomitant]
  12. SYNTHROID [Concomitant]

REACTIONS (1)
  - SLEEP APNOEA SYNDROME [None]
